FAERS Safety Report 8825398 (Version 1)
Quarter: 2012Q4

REPORT INFORMATION
  Report Type: 
  Country: US (occurrence: US)
  Receive Date: 20121004
  Receipt Date: 20121004
  Transmission Date: 20130627
  Serious: No
  Sender: FDA-Public Use
  Company Number: US-009507513-1210USA002089

PATIENT
  Age: 10 Month
  Sex: Female

DRUGS (2)
  1. MIRALAX [Suspect]
     Indication: CONSTIPATION
     Dosage: 0.5 tsp, qd
     Route: 048
  2. MIRALAX [Suspect]
     Indication: MEDICAL OBSERVATION
     Dosage: 2 tsp, Once
     Route: 048
     Dates: start: 20120918

REACTIONS (3)
  - Diarrhoea [Unknown]
  - Drug administered to patient of inappropriate age [Unknown]
  - Off label use [Unknown]
